FAERS Safety Report 18320224 (Version 1)
Quarter: 2020Q3

REPORT INFORMATION
  Report Type: Spontaneous
  Country: CN (occurrence: CN)
  Receive Date: 20200928
  Receipt Date: 20200928
  Transmission Date: 20201103
  Serious: Yes (Hospitalization)
  Sender: FDA-Public Use
  Company Number: CN-PFIZER INC-2020373011

PATIENT
  Age: 82 Year
  Sex: Female
  Weight: 53 kg

DRUGS (4)
  1. EFEXOR XR [Suspect]
     Active Substance: VENLAFAXINE HYDROCHLORIDE
     Indication: DEPRESSION
     Dosage: 75.000 MG, 2X/DAY
     Route: 048
     Dates: start: 20200814, end: 20200902
  2. ESTAZOLAM. [Concomitant]
     Active Substance: ESTAZOLAM
     Indication: SLEEP DISORDER
     Dosage: 2.000 MG, 1X/DAY
     Route: 048
     Dates: start: 20180605, end: 20200924
  3. OLANZAPINE DR REDDY [Concomitant]
     Active Substance: OLANZAPINE
     Indication: SLEEP DISORDER
     Dosage: 2.500 MG, 1X/DAY
     Route: 048
     Dates: start: 20180605, end: 20200924
  4. QI BI TE [Concomitant]
     Active Substance: BUSPIRONE HYDROCHLORIDE
     Indication: ANXIETY
     Dosage: 5.000 MG, 3X/DAY
     Route: 048
     Dates: start: 20180605, end: 20200924

REACTIONS (4)
  - Drooling [Recovered/Resolved]
  - Asthenia [Recovered/Resolved]
  - Lacrimation disorder [Recovered/Resolved]
  - Rhinorrhoea [Recovered/Resolved]

NARRATIVE: CASE EVENT DATE: 20200815
